FAERS Safety Report 13917888 (Version 1)
Quarter: 2017Q3

REPORT INFORMATION
  Report Type: Spontaneous
  Country: JP (occurrence: JP)
  Receive Date: 20170829
  Receipt Date: 20170829
  Transmission Date: 20171127
  Serious: Yes (Hospitalization)
  Sender: FDA-Public Use
  Company Number: JP-DSJP-DSJ-2017-120928

PATIENT

DRUGS (1)
  1. LIXIANA TABLETS 30MG [Suspect]
     Active Substance: EDOXABAN TOSYLATE
     Indication: EMBOLISM VENOUS
     Dosage: 30 MG, QD
     Route: 048
     Dates: start: 20170216, end: 20170604

REACTIONS (3)
  - Underdose [Unknown]
  - Blood pressure decreased [Unknown]
  - Haemorrhage [Recovered/Resolved]
